FAERS Safety Report 9731877 (Version 1)
Quarter: 2013Q4

REPORT INFORMATION
  Report Type: Spontaneous
  Country: US (occurrence: None)
  Receive Date: 20131203
  Receipt Date: 20131203
  Transmission Date: 20140711
  Serious: Yes (Death)
  Sender: FDA-Public Use
  Company Number: US-ALKEM-000402

PATIENT
  Age: 68 Year
  Sex: Female

DRUGS (4)
  1. AMLODIPINE [Suspect]
     Dosage: ORAL
     Route: 048
  2. LOSARTAN(LOSARTAN) [Suspect]
     Dosage: ORAL
     Route: 048
  3. DIAZEPAM(DIAZEPAM) (DIAZEPAM) [Suspect]
     Dosage: ORAL
     Route: 048
  4. CARBAMAZEPINE [Suspect]
     Dosage: ORAL
     Route: 048

REACTIONS (1)
  - Completed suicide [None]
